FAERS Safety Report 9907354 (Version 3)
Quarter: 2014Q1

REPORT INFORMATION
  Report Type: Report from Study
  Country: GB (occurrence: GB)
  Receive Date: 20140218
  Receipt Date: 20140227
  Transmission Date: 20141002
  Serious: Yes (Hospitalization)
  Sender: FDA-Public Use
  Company Number: GB-US-EMD SERONO, INC.-7254584

PATIENT
  Age: 43 Year
  Sex: Female

DRUGS (11)
  1. REBIF [Suspect]
     Indication: MULTIPLE SCLEROSIS RELAPSE PROPHYLAXIS
     Route: 058
     Dates: start: 20121204, end: 201312
  2. REBIF [Suspect]
     Route: 058
     Dates: start: 201312
  3. PARACETAMOL [Concomitant]
     Indication: PAIN
     Route: 048
  4. VENLAFAXINE [Concomitant]
     Indication: DEPRESSION
     Route: 048
  5. ELLESTE-SOLO [Concomitant]
     Indication: HORMONE REPLACEMENT THERAPY
  6. DICLOFENAC [Concomitant]
     Indication: PAIN
     Route: 048
  7. METOCLOPRAMIDE [Concomitant]
     Indication: NAUSEA
     Route: 048
  8. AMITRIPTYLINE [Concomitant]
     Indication: NEURALGIA
     Route: 048
  9. GABAPENTIN [Concomitant]
     Indication: NEURALGIA
     Route: 048
  10. TRAMADOL [Concomitant]
     Indication: NEURALGIA
     Route: 048
  11. ORAMORPH [Concomitant]
     Indication: NEURALGIA
     Route: 048

REACTIONS (2)
  - Multiple sclerosis relapse [Recovered/Resolved]
  - Anxiety [Recovered/Resolved]
